FAERS Safety Report 8607495 (Version 2)
Quarter: 2012Q4

REPORT INFORMATION
  Report Type: 
  Country: PT (occurrence: PT)
  Receive Date: 20120611
  Receipt Date: 20121008
  Transmission Date: 20130627
  Serious: Yes (Life-Threatening, Hospitalization)
  Sender: FDA-Public Use
  Company Number: PT-MILLENNIUM PHARMACEUTICALS, INC.-2012-03816

PATIENT

DRUGS (11)
  1. VELCADE [Suspect]
     Indication: MULTIPLE MYELOMA
     Dosage: 1.3 mg/m2, UNK
     Route: 065
  2. DEXAMETHASONE [Concomitant]
     Indication: MULTIPLE MYELOMA
     Dosage: 20 mg, UNK
  3. NORTRIPTYLINE [Concomitant]
     Dosage: 25 mg, UNK
     Route: 048
  4. AMITRIPTYLINE [Concomitant]
     Dosage: 25 mg, UNK
     Route: 048
  5. MYFORTIC                           /01275101/ [Concomitant]
     Dosage: 720 mg, UNK
  6. CICLOSPORIN [Concomitant]
     Dosage: 100 mg, UNK
     Route: 048
  7. PREDNISOLONE [Concomitant]
     Dosage: 2.5 mg, UNK
  8. PANTOPRAZOLE [Concomitant]
     Dosage: 20 mg, UNK
  9. OXAZEPAM [Concomitant]
     Dosage: 15 mg, UNK
     Route: 048
  10. AMLODIPINE [Concomitant]
     Dosage: 5 mg, UNK
     Route: 048
  11. SERTRALINE [Concomitant]
     Dosage: 50 mg, UNK
     Route: 048

REACTIONS (2)
  - Myocardial infarction [Unknown]
  - Lung infection [Unknown]
